FAERS Safety Report 14153898 (Version 2)
Quarter: 2017Q4

REPORT INFORMATION
  Report Type: Report from Study
  Country: AR (occurrence: AR)
  Receive Date: 20171102
  Receipt Date: 20171114
  Transmission Date: 20180321
  Serious: Yes (Hospitalization, Other)
  Sender: FDA-Public Use
  Company Number: PHHY2017AR160117

PATIENT
  Sex: Male

DRUGS (3)
  1. ATORVASTATIN [Concomitant]
     Active Substance: ATORVASTATIN
     Indication: PRODUCT USED FOR UNKNOWN INDICATION
     Dosage: 10 MG, QD
     Route: 065
  2. EXFORGE [Suspect]
     Active Substance: AMLODIPINE BESYLATE\VALSARTAN
     Indication: HYPERTENSION
     Dosage: 1 DF (AMLODIPINE 10 MG AND VALSARTAN 160 MG), QD
     Route: 065
  3. ASPIRINETAS [Concomitant]
     Active Substance: ASPIRIN
     Indication: PRODUCT USED FOR UNKNOWN INDICATION
     Dosage: UNK UNK, QD
     Route: 065

REACTIONS (7)
  - Memory impairment [Unknown]
  - Arterial occlusive disease [Recovered/Resolved]
  - Infarction [Unknown]
  - Malaise [Recovered/Resolved]
  - Prostatic cyst [Unknown]
  - Blood pressure increased [Recovered/Resolved]
  - Prostate cancer [Recovering/Resolving]

NARRATIVE: CASE EVENT DATE: 2013
